FAERS Safety Report 5369225-5 (Version None)
Quarter: 2007Q2

REPORT INFORMATION
  Report Type: 
  Country: None (occurrence: None)
  Receive Date: 20070625
  Receipt Date: 20070219
  Transmission Date: 20071010
  Serious: Yes (Other)
  Sender: FDA-Public Use
  Company Number: US-ASTRAZENECA-2007UW03233

PATIENT
  Age: 55 Year
  Sex: Female

DRUGS (3)
  1. CRESTOR [Suspect]
     Route: 048
  2. LEXAPRO [Concomitant]
  3. DIOVAN [Concomitant]

REACTIONS (3)
  - ABDOMINAL PAIN [None]
  - FATIGUE [None]
  - LIVER FUNCTION TEST ABNORMAL [None]
